FAERS Safety Report 8158574-3 (Version None)
Quarter: 2012Q1

REPORT INFORMATION
  Report Type: 
  Country: None (occurrence: None)
  Receive Date: 20120223
  Receipt Date: 20120221
  Transmission Date: 20120608
  Serious: No
  Sender: FDA-Public Use
  Company Number: AU-JNJFOC-20120210984

PATIENT
  Sex: Male

DRUGS (5)
  1. REMICADE [Suspect]
     Route: 042
     Dates: start: 20120116
  2. TRAMADOL HCL [Concomitant]
     Route: 065
  3. REMICADE [Suspect]
     Indication: PSORIASIS
     Route: 042
  4. MOBIC [Concomitant]
     Route: 065
  5. PREDNISONE [Concomitant]
     Route: 065

REACTIONS (1)
  - HERPES ZOSTER [None]
